FAERS Safety Report 9639268 (Version 1)
Quarter: 2013Q4

REPORT INFORMATION
  Report Type: Spontaneous
  Country: US (occurrence: US)
  Receive Date: 20131022
  Receipt Date: 20131022
  Transmission Date: 20140711
  Serious: No
  Sender: FDA-Public Use
  Company Number: US-B.I. PHARMACEUTICALS,INC./RIDGEFIELD-2013-BI-33048BP

PATIENT
  Age: 62 Year
  Sex: Female

DRUGS (4)
  1. SPIRIVA [Suspect]
     Dosage: 18 MCG
     Route: 055
     Dates: start: 201309
  2. LIPITOR [Concomitant]
     Route: 048
  3. PROVENTIL [Concomitant]
     Route: 055
  4. WARFARIN [Concomitant]
     Route: 048

REACTIONS (3)
  - Atrial fibrillation [Recovered/Resolved]
  - Blood pressure increased [Recovered/Resolved]
  - Overdose [Recovered/Resolved]
